FAERS Safety Report 8599566-X (Version None)
Quarter: 2012Q3

REPORT INFORMATION
  Report Type: 
  Country: None (occurrence: None)
  Receive Date: 20120802
  Receipt Date: 20120717
  Transmission Date: 20120928
  Serious: Yes (Hospitalization)
  Sender: FDA-Public Use
  Company Number: AE-AMP-2012-005

PATIENT
  Age: 49 Year
  Sex: Male

DRUGS (2)
  1. NONSTEROIDAL ANTI-INFLAMMATORY DRUG (NSAID) [Concomitant]
  2. AMPICILLIN AND SULBACTAM [Suspect]
     Indication: TONSILLITIS

REACTIONS (3)
  - ENTEROCOLITIS HAEMORRHAGIC [None]
  - DIARRHOEA [None]
  - DIARRHOEA HAEMORRHAGIC [None]
